FAERS Safety Report 4352952-6 (Version None)
Quarter: 2004Q2

REPORT INFORMATION
  Report Type: 
  Country: None (occurrence: None)
  Receive Date: 20040429
  Receipt Date: 20040420
  Transmission Date: 20050107
  Serious: Yes (Hospitalization, Other)
  Sender: FDA-Public Use
  Company Number: 2004017368

PATIENT
  Age: 80 Year
  Sex: Female
  Weight: 49.9 kg

DRUGS (12)
  1. ZITHROMAX [Suspect]
     Indication: UPPER RESPIRATORY TRACT INFLAMMATION
     Dosage: 500 MG (DAILY), ORAL
     Route: 048
     Dates: start: 20040202, end: 20040204
  2. CLINDAMYCIN HCL [Suspect]
     Indication: UPPER RESPIRATORY TRACT INFLAMMATION
     Dosage: 600 MG (DAILY), INTRAVENOUS
     Route: 042
     Dates: start: 20040202, end: 20040202
  3. DICLOFENAC SODIUM [Suspect]
     Indication: PYREXIA
     Dosage: 12.5 MG (DAILY), RECTAL
     Route: 054
     Dates: start: 20040131, end: 20040131
  4. CEFDINIR (CEFDINIR) [Suspect]
     Indication: UPPER RESPIRATORY TRACT INFLAMMATION
     Dosage: 300 MG (TID), ORAL
     Route: 048
     Dates: start: 20040131, end: 20040202
  5. ACETAMINOPHEN [Concomitant]
  6. SOLITA-T3 (SODIUM LACATTE, POTASSIUM CHLORIDE, SODIUM CHLORIDE) [Concomitant]
  7. PYRIDOXAL (PYRIDOXAL) [Concomitant]
  8. SERRAPEPTASE (SERRAPEPTASE) [Concomitant]
  9. EPRAZINONE HYDROCHLORIDE (EPRAZINONE HYDROCHLORIDE) [Concomitant]
  10. MARZULENE S (LEVOGLUTAMIDE, SODIUM GUALENATE) [Concomitant]
  11. AMLODIPINE BESYLATE [Concomitant]
  12. PYRIDOXAL (PYRIDOXAL) [Concomitant]

REACTIONS (12)
  - BLOOD POTASSIUM DECREASED [None]
  - BLOOD PRESSURE DECREASED [None]
  - C-REACTIVE PROTEIN INCREASED [None]
  - DIALYSIS [None]
  - GASTRIC DISORDER [None]
  - HAEMOGLOBIN DECREASED [None]
  - HEADACHE [None]
  - MYCOPLASMA INFECTION [None]
  - NAUSEA [None]
  - RENAL FAILURE ACUTE [None]
  - RENAL TUBULAR DISORDER [None]
  - WHITE BLOOD CELL COUNT INCREASED [None]
